FAERS Safety Report 8417388-7 (Version None)
Quarter: 2012Q2

REPORT INFORMATION
  Report Type: 
  Country: None (occurrence: None)
  Receive Date: 20120606
  Receipt Date: 20120530
  Transmission Date: 20120825
  Serious: Yes (Hospitalization)
  Sender: FDA-Public Use
  Company Number: IL-B.I. PHARMACEUTICALS,INC./RIDGEFIELD-2012-AP-00454RI

PATIENT
  Age: 90 Year
  Sex: Female

DRUGS (2)
  1. GABAPENTIN [Concomitant]
  2. PRADAXA [Suspect]

REACTIONS (2)
  - ENCEPHALOPATHY [None]
  - COMA [None]
